FAERS Safety Report 24654665 (Version 1)
Quarter: 2024Q4

REPORT INFORMATION
  Report Type: Spontaneous
  Country: US (occurrence: US)
  Receive Date: 20241122
  Receipt Date: 20241122
  Transmission Date: 20250114
  Serious: Yes (Hospitalization, Other)
  Sender: PFIZER
  Company Number: US-PFIZER INC-PV202400149835

PATIENT
  Age: 91 Year
  Sex: Male
  Weight: 89.8 kg

DRUGS (5)
  1. VYNDAMAX [Suspect]
     Active Substance: TAFAMIDIS
     Indication: Heart failure with reduced ejection fraction
     Dosage: TAKE 1 CAPSULE BY MOUTH IN THE MORNING
     Route: 048
     Dates: start: 20231211
  2. VYNDAMAX [Suspect]
     Active Substance: TAFAMIDIS
     Indication: Cardiac failure
  3. VYNDAMAX [Suspect]
     Active Substance: TAFAMIDIS
     Indication: Cardiac amyloidosis
  4. VYNDAMAX [Suspect]
     Active Substance: TAFAMIDIS
     Indication: Acquired ATTR amyloidosis
  5. ALDACTONE [Concomitant]
     Active Substance: SPIRONOLACTONE
     Dosage: 25MG DAILY

REACTIONS (3)
  - Dyspnoea exertional [Recovering/Resolving]
  - Scan myocardial perfusion abnormal [Unknown]
  - Angina unstable [Unknown]
